FAERS Safety Report 24297793 (Version 1)
Quarter: 2024Q3

REPORT INFORMATION
  Report Type: Spontaneous
  Country: US (occurrence: US)
  Receive Date: 20240909
  Receipt Date: 20240909
  Transmission Date: 20241017
  Serious: Yes (Other)
  Sender: AUROBINDO
  Company Number: US-AUROBINDO-AUR-APL-2024-037881

PATIENT
  Age: 75 Year
  Sex: Female

DRUGS (3)
  1. MINOCYCLINE [Suspect]
     Active Substance: MINOCYCLINE HYDROCHLORIDE
     Indication: Acinetobacter infection
     Dosage: UNK
     Route: 065
  2. POLYMYXIN B [Suspect]
     Active Substance: POLYMYXIN B
     Indication: Acinetobacter infection
     Dosage: UNK
     Route: 065
  3. CEFIDEROCOL [Suspect]
     Active Substance: CEFIDEROCOL
     Indication: Acinetobacter infection
     Dosage: UNK
     Route: 042

REACTIONS (2)
  - Hepatic enzyme increased [Recovered/Resolved]
  - Drug ineffective [Unknown]
